FAERS Safety Report 4982185-1 (Version None)
Quarter: 2006Q2

REPORT INFORMATION
  Report Type: 
  Country: None (occurrence: None)
  Receive Date: 20060419
  Receipt Date: 20060327
  Transmission Date: 20061013
  Serious: Yes (Other)
  Sender: FDA-Public Use
  Company Number: US200603006643

PATIENT
  Age: 32 Year
  Sex: Female

DRUGS (1)
  1. HUMULIN 70/30 [Suspect]
     Indication: DIABETES MELLITUS
     Dosage: 32 U, DAILY (1/D),

REACTIONS (2)
  - CONVULSION [None]
  - INTENTIONAL OVERDOSE [None]
